FAERS Safety Report 8425580-0 (Version None)
Quarter: 2012Q2

REPORT INFORMATION
  Report Type: 
  Country: None (occurrence: None)
  Receive Date: 20120531
  Receipt Date: 20120514
  Transmission Date: 20120825
  Serious: Yes (Other)
  Sender: FDA-Public Use
  Company Number: ACO_30461_2012

PATIENT
  Age: 46 Year
  Sex: Male

DRUGS (5)
  1. FAMPYRA (DALFAMPRIDINE) TABLET, 10MG [Suspect]
     Indication: MULTIPLE SCLEROSIS
     Dosage: 10 MG, BID, ORAL
     Route: 048
     Dates: start: 20111015, end: 20120508
  2. BACLOFEN [Concomitant]
  3. TAMSULOSINE (TAMSULOSIN HYDROCHLORIDE) [Concomitant]
  4. TIZANIDINE HCL [Concomitant]
  5. GLATIRAMER ACETATE (GLATIRAMER ACETATE) [Concomitant]

REACTIONS (1)
  - EPILEPSY [None]
